FAERS Safety Report 9099232 (Version 1)
Quarter: 2013Q1

REPORT INFORMATION
  Report Type: Spontaneous
  Country: US (occurrence: US)
  Receive Date: 20130214
  Receipt Date: 20130214
  Transmission Date: 20140127
  Serious: No
  Sender: FDA-Public Use
  Company Number: US-COVIDIEN/TYCO HEALTHCARE/MALLINCKRODT-T201204322

PATIENT
  Sex: Female

DRUGS (5)
  1. FENTANYL TRANSDERMAL SYSTEM [Suspect]
     Indication: BACK PAIN
     Dosage: 75 UG/HR, Q 72 HOURS
     Route: 062
     Dates: start: 20121105
  2. FENTANYL TRANSDERMAL SYSTEM [Suspect]
     Dosage: UNK
     Dates: start: 20121105
  3. VICODIN [Concomitant]
     Indication: PAIN
     Dosage: UNK, PRN
  4. MUSCLE RELAXANTS [Concomitant]
     Dosage: UNK
  5. IBUPROFEN [Concomitant]
     Indication: PAIN
     Dosage: UNK

REACTIONS (2)
  - Inappropriate schedule of drug administration [Not Recovered/Not Resolved]
  - Drug effect decreased [Not Recovered/Not Resolved]
